FAERS Safety Report 24327371 (Version 2)
Quarter: 2024Q4

REPORT INFORMATION
  Report Type: Spontaneous
  Country: IR (occurrence: IR)
  Receive Date: 20240917
  Receipt Date: 20241001
  Transmission Date: 20250115
  Serious: Yes (Hospitalization, Other)
  Sender: RANBAXY
  Company Number: IR-SUN PHARMACEUTICAL INDUSTRIES LTD-2024R1-468254

PATIENT
  Age: 40 Year
  Sex: Male
  Weight: 70 kg

DRUGS (3)
  1. CLONAZEPAM [Suspect]
     Active Substance: CLONAZEPAM
     Indication: Product used for unknown indication
     Dosage: 2 MILLIGRAM, 13 TABLETS
     Route: 065
  2. METHADONE [Suspect]
     Active Substance: METHADONE HYDROCHLORIDE
     Indication: Product used for unknown indication
     Dosage: 20 MILLIGRAM, 40 TABLETS
     Route: 065
  3. NORTRIPTYLINE [Suspect]
     Active Substance: NORTRIPTYLINE
     Indication: Product used for unknown indication
     Dosage: 10 MILLIGRAMT, 27 TABLETS
     Route: 065

REACTIONS (7)
  - Blood creatine phosphokinase increased [Recovered/Resolved]
  - Toxicity to various agents [Unknown]
  - Acute kidney injury [Recovering/Resolving]
  - Rhabdomyolysis [Unknown]
  - Suicide attempt [Unknown]
  - Blood creatinine increased [Recovered/Resolved]
  - Overdose [Unknown]
